FAERS Safety Report 5085275-0 (Version None)
Quarter: 2006Q3

REPORT INFORMATION
  Report Type: 
  Country: None (occurrence: None)
  Receive Date: 20060731
  Receipt Date: 20060127
  Transmission Date: 20061208
  Serious: Yes (Life-Threatening, Other)
  Sender: FDA-Public Use
  Company Number: 200512582BWH

PATIENT
  Age: 61 Year
  Sex: Female

DRUGS (4)
  1. AVELOX [Suspect]
     Indication: RESPIRATORY TRACT INFECTION
     Dosage: 400 MG, ONCE, ORAL
     Route: 048
  2. METFORMIN HCL [Concomitant]
  3. COZAAR [Concomitant]
  4. ACTOS [Concomitant]

REACTIONS (4)
  - ANAPHYLACTIC REACTION [None]
  - ANAPHYLACTIC SHOCK [None]
  - HYPOTENSION [None]
  - THROAT TIGHTNESS [None]
